FAERS Safety Report 5902188-X (Version None)
Quarter: 2008Q3

REPORT INFORMATION
  Report Type: 
  Country: None (occurrence: None)
  Receive Date: 20080929
  Receipt Date: 20080918
  Transmission Date: 20090109
  Serious: Yes (Death)
  Sender: FDA-Public Use
  Company Number: JP-PFIZER INC-2008079535

PATIENT
  Age: 54 Year
  Sex: Male
  Weight: 65 kg

DRUGS (15)
  1. VFEND [Suspect]
     Indication: DIFFUSE ALVEOLAR DAMAGE
     Dosage: DAILY DOSE:3.1MG/KG
     Route: 042
     Dates: start: 20080418, end: 20080422
  2. FLUCONAZOLE [Concomitant]
     Route: 048
     Dates: start: 20070101
  3. FINIBAX [Concomitant]
     Route: 042
     Dates: start: 20080418, end: 20080421
  4. VANCOMYCIN HYDROCHLORIDE [Concomitant]
     Route: 042
     Dates: start: 20080418, end: 20080421
  5. AMINO ACIDS/ELECTROLYTES/GLUCOSE/VITAMINS [Concomitant]
     Route: 042
     Dates: start: 20080419
  6. HYDROCORTISONE SODIUM SUCCINATE [Concomitant]
     Route: 042
     Dates: start: 20080420
  7. OMEPRAZOLE [Concomitant]
     Route: 042
     Dates: start: 20080417, end: 20080422
  8. ALLOPURINOL [Concomitant]
     Route: 042
     Dates: start: 20080417, end: 20080420
  9. PLATELETS [Concomitant]
     Route: 042
     Dates: start: 20080417, end: 20080418
  10. PLATELETS [Concomitant]
     Route: 042
     Dates: start: 20080419, end: 20080419
  11. ZOVIRAX [Concomitant]
     Route: 042
     Dates: end: 20080420
  12. AMLODIPINE BESYLATE [Concomitant]
     Route: 048
     Dates: end: 20080420
  13. MIYARI BACTERIA [Concomitant]
     Route: 048
     Dates: end: 20080420
  14. COTRIM [Concomitant]
     Route: 048
     Dates: end: 20080420
  15. NEORAL [Concomitant]
     Route: 048
     Dates: end: 20080420

REACTIONS (1)
  - DEATH [None]
